FAERS Safety Report 10034191 (Version 2)
Quarter: 2014Q1

REPORT INFORMATION
  Report Type: Report from Study
  Country: SE (occurrence: SE)
  Receive Date: 20140325
  Receipt Date: 20140325
  Transmission Date: 20141002
  Serious: Yes (Hospitalization)
  Sender: FDA-Public Use
  Company Number: SE-TEVA-433645USA

PATIENT
  Sex: Male
  Weight: 63.5 kg

DRUGS (5)
  1. BENDAMUSTINE [Suspect]
     Indication: MANTLE CELL LYMPHOMA
     Route: 042
     Dates: start: 20130613
  2. BENDAMUSTINE [Suspect]
     Route: 042
     Dates: start: 20130906
  3. RITUXIMAB [Suspect]
     Indication: MANTLE CELL LYMPHOMA
     Route: 042
     Dates: start: 20130613
  4. RITUXIMAB [Suspect]
     Route: 042
     Dates: start: 20130905
  5. PLACEBO [Suspect]
     Indication: MANTLE CELL LYMPHOMA
     Dosage: 560 MILLIGRAM DAILY;
     Route: 048
     Dates: start: 20130613

REACTIONS (1)
  - Pulmonary embolism [Recovered/Resolved]
